FAERS Safety Report 8034015-1 (Version None)
Quarter: 2012Q1

REPORT INFORMATION
  Report Type: 
  Country: None (occurrence: None)
  Receive Date: 20120110
  Receipt Date: 20120102
  Transmission Date: 20120608
  Serious: Yes (Death)
  Sender: FDA-Public Use
  Company Number: US-BAYER-2012-002148

PATIENT
  Age: 57 Year
  Sex: Female

DRUGS (9)
  1. GABAPENTIN [Suspect]
     Route: 048
  2. VENLAFAXINE [Suspect]
     Route: 048
  3. BACLOFEN [Suspect]
     Route: 048
  4. CLONAZEPAM [Suspect]
     Route: 048
  5. DILTIAZEM HCL [Suspect]
     Route: 048
  6. METHOTREXATE [Suspect]
     Route: 048
  7. FLUOXETINE [Suspect]
     Route: 048
  8. DIPHENHYDRAMINE HCL [Suspect]
     Route: 048
  9. ANTIMALARIALS [Suspect]
     Route: 048

REACTIONS (1)
  - TOXICITY TO VARIOUS AGENTS [None]
